FAERS Safety Report 8172027-8 (Version None)
Quarter: 2012Q1

REPORT INFORMATION
  Report Type: 
  Country: None (occurrence: None)
  Receive Date: 20120228
  Receipt Date: 20120220
  Transmission Date: 20120608
  Serious: Yes (Other)
  Sender: FDA-Public Use
  Company Number: PHHY2012NL014385

PATIENT

DRUGS (4)
  1. METHADONE HCL [Suspect]
  2. METOPROLOL SUCCINATE [Suspect]
     Dosage: 50 MG, BID
  3. HEROIN [Concomitant]
     Route: 042
  4. COCAINE [Concomitant]

REACTIONS (5)
  - DIZZINESS [None]
  - HAEMATOMA [None]
  - SYNCOPE [None]
  - BRADYARRHYTHMIA [None]
  - TORSADE DE POINTES [None]
